FAERS Safety Report 24026178 (Version 1)
Quarter: 2024Q2

REPORT INFORMATION
  Report Type: Report from Study
  Country: LT (occurrence: LT)
  Receive Date: 20240628
  Receipt Date: 20240628
  Transmission Date: 20240715
  Serious: No
  Sender: FDA-Public Use
  Company Number: LT-ROCHE-3345797

PATIENT
  Age: 41 Year
  Sex: Male
  Weight: 64.0 kg

DRUGS (2)
  1. ALECTINIB [Suspect]
     Active Substance: ALECTINIB
     Indication: Lung cancer metastatic
     Route: 048
     Dates: start: 20221005
  2. IBUPROFEN [Concomitant]
     Active Substance: IBUPROFEN
     Indication: Chest pain
     Dosage: FREQUENCY TEXT:PRN
     Route: 048
     Dates: start: 202208

REACTIONS (2)
  - Aspartate aminotransferase increased [Recovered/Resolved]
  - Alanine aminotransferase increased [Recovered/Resolved]

NARRATIVE: CASE EVENT DATE: 20230308
